FAERS Safety Report 5568647-7 (Version None)
Quarter: 2007Q4

REPORT INFORMATION
  Report Type: 
  Country: None (occurrence: None)
  Receive Date: 20071220
  Receipt Date: 20071202
  Transmission Date: 20080405
  Serious: No
  Sender: FDA-Public Use
  Company Number: TR-BAXTER-2007BH009886

PATIENT

DRUGS (1)
  1. TISSUCOL/TISSEEL KIT STIM4 [Suspect]
     Indication: SURGERY
     Dosage: DOSE UNIT:UNKNOWN
     Route: 065
     Dates: start: 20070101, end: 20070101

REACTIONS (1)
  - INTRACRANIAL HYPOTENSION [None]
